FAERS Safety Report 24191346 (Version 1)
Quarter: 2024Q3

REPORT INFORMATION
  Report Type: Spontaneous
  Country: US (occurrence: US)
  Receive Date: 20240808
  Receipt Date: 20240808
  Transmission Date: 20241016
  Serious: No
  Sender: JOHNSON AND JOHNSON
  Company Number: US-JNJFOC-20240804447

PATIENT
  Age: 8 Decade
  Sex: Female

DRUGS (1)
  1. WOMENS ROGAINE UNSCENTED [Suspect]
     Active Substance: MINOXIDIL
     Indication: Alopecia
     Dosage: PUT ON THE TOP HALF INCH AND 3 QUARTER OF AN INCH IN THREE DIFFERENT PLACES IT WAS LIKE 3/4 CAPFUL
     Route: 061
     Dates: start: 202212

REACTIONS (3)
  - Alopecia [Recovering/Resolving]
  - Overdose [Unknown]
  - Product dose omission issue [Unknown]

NARRATIVE: CASE EVENT DATE: 20221201
